FAERS Safety Report 4882711-7 (Version None)
Quarter: 2006Q1

REPORT INFORMATION
  Report Type: 
  Country: None (occurrence: None)
  Receive Date: 20060113
  Receipt Date: 20060105
  Transmission Date: 20060701
  Serious: Yes (Other)
  Sender: FDA-Public Use
  Company Number: 2006003119

PATIENT
  Age: 25 Year
  Sex: Male

DRUGS (1)
  1. ROGAINE [Suspect]
     Dosage: A LITTLE BIT ONCE, ORAL
     Route: 048
     Dates: start: 20060105, end: 20060105

REACTIONS (2)
  - MEDICATION ERROR [None]
  - VOMITING [None]
